FAERS Safety Report 6100676-7 (Version None)
Quarter: 2009Q1

REPORT INFORMATION
  Report Type: 
  Country: None (occurrence: None)
  Receive Date: 20090303
  Receipt Date: 20090220
  Transmission Date: 20090719
  Serious: Yes (Hospitalization, Other)
  Sender: FDA-Public Use
  Company Number: PHHY2009PT07277

PATIENT
  Age: 75 Year
  Sex: Female

DRUGS (8)
  1. EXELON [Suspect]
     Dosage: UNK
     Route: 062
     Dates: start: 20090128, end: 20090131
  2. EXELON [Suspect]
     Dosage: UNK
     Route: 062
     Dates: start: 20090204, end: 20090217
  3. LISINOPRIL [Concomitant]
  4. FUROSEMIDE [Concomitant]
  5. METFORMIN HCL [Concomitant]
  6. BISOPROLOL [Concomitant]
     Dosage: 5 MG
  7. WARFARIN SODIUM [Concomitant]
  8. INSULIN [Concomitant]

REACTIONS (5)
  - APATHY [None]
  - ARRHYTHMIA [None]
  - BLOOD ALKALINE PHOSPHATASE INCREASED [None]
  - CONDITION AGGRAVATED [None]
  - GAMMA-GLUTAMYLTRANSFERASE INCREASED [None]
